FAERS Safety Report 22030124 (Version 1)
Quarter: 2023Q1

REPORT INFORMATION
  Report Type: Spontaneous
  Country: US (occurrence: US)
  Receive Date: 20230223
  Receipt Date: 20230223
  Transmission Date: 20230417
  Serious: Yes (Other)
  Sender: FDA-Public Use
  Company Number: US-LANTHEUS-LMI-2022-00220

PATIENT
  Sex: Male

DRUGS (1)
  1. DEFINITY [Suspect]
     Active Substance: PERFLUTREN
     Indication: Product used for unknown indication
     Dosage: UNK
     Dates: start: 2011, end: 2011

REACTIONS (6)
  - Anaphylactic shock [Unknown]
  - Blood pressure decreased [Unknown]
  - Visual impairment [Unknown]
  - Rash papular [Unknown]
  - Pruritus [Unknown]
  - Erythema [Unknown]

NARRATIVE: CASE EVENT DATE: 20110101
